FAERS Safety Report 12081517 (Version 1)
Quarter: 2016Q1

REPORT INFORMATION
  Report Type: Spontaneous
  Country: US (occurrence: US)
  Receive Date: 20160216
  Receipt Date: 20160216
  Transmission Date: 20160526
  Serious: Yes (Hospitalization, Other)
  Sender: FDA-Public Use
  Company Number: US-FRESENIUS MEDICAL CARE NORTH AMERICA-1047910

PATIENT
  Age: 52 Year
  Sex: Male

DRUGS (1)
  1. DELFLEX [Suspect]
     Active Substance: CALCIUM CHLORIDE\DEXTROSE\MAGNESIUM CHLORIDE\SODIUM CHLORIDE\SODIUM LACTATE
     Indication: END STAGE RENAL DISEASE
     Route: 033

REACTIONS (4)
  - Pneumonia [Recovering/Resolving]
  - Hyperkalaemia [Recovering/Resolving]
  - Acute respiratory failure [None]
  - Pleural effusion [Recovering/Resolving]

NARRATIVE: CASE EVENT DATE: 20151228
